FAERS Safety Report 5301939-5 (Version None)
Quarter: 2007Q2

REPORT INFORMATION
  Report Type: 
  Country: None (occurrence: None)
  Receive Date: 20070416
  Receipt Date: 20070416
  Transmission Date: 20071010
  Serious: Yes (Hospitalization)
  Sender: FDA-Public Use
  Company Number: None

PATIENT
  Age: 24 Year
  Sex: Female
  Weight: 70.3075 kg

DRUGS (1)
  1. MINOCYCLINE 100MG CAPS TEVAU [Suspect]
     Indication: ACNE
     Dosage: 100MG    1 X DAILY   PO
     Route: 048
     Dates: start: 20070328, end: 20070413

REACTIONS (1)
  - HYPERSENSITIVITY [None]
